FAERS Safety Report 4783230-9 (Version None)
Quarter: 2005Q3

REPORT INFORMATION
  Report Type: 
  Country: None (occurrence: None)
  Receive Date: 20050929
  Receipt Date: 20050922
  Transmission Date: 20060218
  Serious: Yes (Other)
  Sender: FDA-Public Use
  Company Number: 2005UW14202

PATIENT
  Age: 72 Year
  Sex: Male

DRUGS (5)
  1. SEROQUEL [Suspect]
     Route: 048
  2. CITALOPRAM [Interacting]
     Route: 048
  3. NEURONTIN [Interacting]
     Route: 048
  4. RISPERDAL [Interacting]
     Route: 048
  5. LOXAPINE [Concomitant]

REACTIONS (5)
  - CONFUSIONAL STATE [None]
  - DEPRESSION [None]
  - DRUG INTERACTION [None]
  - PATHOLOGICAL FRACTURE [None]
  - PSYCHOTIC DISORDER [None]
